FAERS Safety Report 7722917-2 (Version None)
Quarter: 2011Q3

REPORT INFORMATION
  Report Type: 
  Country: None (occurrence: None)
  Receive Date: 20110901
  Receipt Date: 20080718
  Transmission Date: 20111222
  Serious: No
  Sender: FDA-Public Use
  Company Number: 2008BI019347

PATIENT
  Age: 43 Year
  Sex: Female

DRUGS (1)
  1. TYSABRI [Suspect]
     Indication: MULTIPLE SCLEROSIS
     Route: 042
     Dates: start: 20080617

REACTIONS (7)
  - HEADACHE [None]
  - NERVOUSNESS [None]
  - PAIN [None]
  - ASTHENIA [None]
  - VOMITING [None]
  - ABDOMINAL PAIN UPPER [None]
  - MUSCLE SPASMS [None]
